FAERS Safety Report 4991244-9 (Version None)
Quarter: 2006Q2

REPORT INFORMATION
  Report Type: 
  Country: None (occurrence: None)
  Receive Date: 20060428
  Receipt Date: 20060417
  Transmission Date: 20061013
  Serious: Yes (Hospitalization, Other)
  Sender: FDA-Public Use
  Company Number: US_0509122430

PATIENT
  Age: 49 Year
  Sex: Female
  Weight: 74.8 kg

DRUGS (6)
  1. ZYPREXA [Suspect]
     Dosage: 10 MG, EACH EVENING, ORAL
     Route: 048
     Dates: start: 20030428, end: 20030519
  2. XANAX [Concomitant]
  3. GLIPIZIDE [Concomitant]
  4. KLONOPIN [Concomitant]
  5. NEURONTIN [Concomitant]
  6. EFFEXOR [Concomitant]

REACTIONS (11)
  - DIABETES MELLITUS [None]
  - ELECTROCARDIOGRAM ST-T CHANGE [None]
  - HAEMOGLOBIN INCREASED [None]
  - INCISIONAL HERNIA GANGRENOUS [None]
  - IRON DEFICIENCY ANAEMIA [None]
  - LEUKOCYTOSIS [None]
  - MYOCARDIAL ISCHAEMIA [None]
  - PANCREATECTOMY [None]
  - PANCREATIC PSEUDOCYST [None]
  - PLATELET COUNT INCREASED [None]
  - WOUND INFECTION STAPHYLOCOCCAL [None]
